FAERS Safety Report 14685388 (Version 1)
Quarter: 2018Q1

REPORT INFORMATION
  Report Type: Spontaneous
  Country: AU (occurrence: AU)
  Receive Date: 20180327
  Receipt Date: 20180327
  Transmission Date: 20180509
  Serious: Yes (Other)
  Sender: FDA-Public Use
  Company Number: AU-SA-2018SA082998

PATIENT
  Age: 57 Year
  Sex: Female

DRUGS (3)
  1. ARAVA [Suspect]
     Active Substance: LEFLUNOMIDE
     Route: 048
  2. PLAQUENIL [Suspect]
     Active Substance: HYDROXYCHLOROQUINE SULFATE
     Route: 048
  3. SIMPONI [Suspect]
     Active Substance: GOLIMUMAB
     Dosage: FREQUENCY: ONCE EVERY FOUR WEEKS
     Route: 058
     Dates: start: 20170415, end: 20170415

REACTIONS (2)
  - Acute generalised exanthematous pustulosis [Unknown]
  - Treatment noncompliance [Unknown]

NARRATIVE: CASE EVENT DATE: 20171115
